FAERS Safety Report 6715182-6 (Version None)
Quarter: 2010Q2

REPORT INFORMATION
  Report Type: 
  Country: None (occurrence: None)
  Receive Date: 20100507
  Receipt Date: 20100422
  Transmission Date: 20101027
  Serious: Yes (Hospitalization, Other)
  Sender: FDA-Public Use
  Company Number: US-BRISTOL-MYERS SQUIBB COMPANY-11700390

PATIENT
  Age: 38 Year
  Sex: Male

DRUGS (11)
  1. VIDEX [Suspect]
     Indication: HIV INFECTION
     Dosage: INTERRUPTED ON 11-JUN-2000,21-JUL-2000 TO 13-SEP-2000,05-MAR-2001 TO 21-APR-2003
     Route: 048
     Dates: start: 20000129, end: 20000611
  2. ZERIT [Suspect]
     Indication: HIV INFECTION
     Dosage: 7-AUG-1995 TO 28-OCT-1996, 21-JUL-2000 TO 23-NOV-2000, 5-MAR-01 TO 21-APR-03, 15-OCT-03 TILL DATE
     Route: 048
     Dates: start: 19971020, end: 20000611
  3. REYATAZ [Suspect]
     Indication: HIV INFECTION
     Route: 048
     Dates: start: 20040206
  4. VIRACEPT [Suspect]
     Indication: HIV INFECTION
     Dosage: 2.3G/DAY FROM 02-JAN-1998 TO 19-JUL-1999; INITIAL DATES: 16-JUL-1997 TO 12-JAN-1998
     Route: 048
     Dates: start: 19990719, end: 20000611
  5. NORVIR [Suspect]
     Indication: HIV INFECTION
     Route: 048
     Dates: start: 20031015
  6. TRUVADA [Suspect]
     Indication: HIV INFECTION
  7. PREZISTA [Suspect]
  8. ISENTRESS [Suspect]
     Indication: HIV INFECTION
  9. COAGULATION FACTOR VIII [Concomitant]
     Dosage: UNITS
     Route: 048
     Dates: start: 19991101
  10. BENAMBAX [Concomitant]
     Route: 048
     Dates: start: 19961101, end: 20010331
  11. CROSS EIGHT M [Concomitant]
     Route: 048
     Dates: start: 19961101

REACTIONS (7)
  - CHOLELITHIASIS [None]
  - DEPRESSIVE SYMPTOM [None]
  - DYSPHORIA [None]
  - HYPERBILIRUBINAEMIA [None]
  - LIVER DISORDER [None]
  - MALAISE [None]
  - PANCREATIC MASS [None]
